FAERS Safety Report 21735859 (Version 2)
Quarter: 2022Q4

REPORT INFORMATION
  Report Type: Spontaneous
  Country: US (occurrence: US)
  Receive Date: 20221215
  Receipt Date: 20221230
  Transmission Date: 20230113
  Serious: Yes (Other)
  Sender: FDA-Public Use
  Company Number: US-GILEAD-2022-0609314

PATIENT
  Sex: Male

DRUGS (1)
  1. YESCARTA [Suspect]
     Active Substance: AXICABTAGENE CILOLEUCEL
     Indication: Product used for unknown indication
     Dosage: START DATE 16-NOV (YEAR NOT SPECIFIED)
     Route: 065

REACTIONS (4)
  - Neurotoxicity [Unknown]
  - Visual impairment [Unknown]
  - Gait disturbance [Unknown]
  - Asthenia [Unknown]
